FAERS Safety Report 7788297-1 (Version None)
Quarter: 2011Q3

REPORT INFORMATION
  Report Type: 
  Country: None (occurrence: None)
  Receive Date: 20110930
  Receipt Date: 20110921
  Transmission Date: 20111222
  Serious: Yes (Other)
  Sender: FDA-Public Use
  Company Number: US-JNJFOC-20110909674

PATIENT
  Sex: Female
  Weight: 73.94 kg

DRUGS (2)
  1. VENTOLIN HFA [Concomitant]
     Indication: ASTHMA
     Route: 055
     Dates: start: 20010101
  2. TOPIRAMATE [Suspect]
     Indication: MIGRAINE PROPHYLAXIS
     Route: 048
     Dates: start: 20110401, end: 20110601

REACTIONS (7)
  - WEIGHT INCREASED [None]
  - HAEMORRHAGE [None]
  - ABNORMAL LOSS OF WEIGHT [None]
  - FEELING ABNORMAL [None]
  - VISION BLURRED [None]
  - FATIGUE [None]
  - ALOPECIA [None]
